FAERS Safety Report 10177865 (Version 1)
Quarter: 2014Q2

REPORT INFORMATION
  Report Type: Report from Study
  Country: US (occurrence: US)
  Receive Date: 20140516
  Receipt Date: 20140516
  Transmission Date: 20141212
  Serious: Yes (Other)
  Sender: FDA-Public Use
  Company Number: US-ABBVIE-14P-163-1235248-00

PATIENT
  Sex: Male
  Weight: 104.42 kg

DRUGS (3)
  1. HUMIRA [Suspect]
     Indication: PSORIATIC ARTHROPATHY
     Route: 058
     Dates: end: 201309
  2. METHOTREXATE [Concomitant]
     Indication: PSORIATIC ARTHROPATHY
  3. NAPROXEN [Concomitant]
     Indication: PSORIATIC ARTHROPATHY

REACTIONS (5)
  - Blood growth hormone increased [Recovered/Resolved]
  - Blood cortisol decreased [Recovered/Resolved]
  - Acromegaly [Not Recovered/Not Resolved]
  - Muscle twitching [Not Recovered/Not Resolved]
  - Burning sensation [Not Recovered/Not Resolved]
